FAERS Safety Report 6279772-X (Version None)
Quarter: 2009Q3

REPORT INFORMATION
  Report Type: 
  Country: None (occurrence: None)
  Receive Date: 20090723
  Receipt Date: 20090518
  Transmission Date: 20100115
  Serious: No
  Sender: FDA-Public Use
  Company Number: US-BAYER-200921959NA

PATIENT
  Age: 75 Year
  Sex: Female
  Weight: 70 kg

DRUGS (3)
  1. MAGNEVIST [Suspect]
     Indication: NUCLEAR MAGNETIC RESONANCE IMAGING ABDOMINAL
     Dosage: TOTAL DAILY DOSE: 20 ML
     Route: 042
     Dates: start: 20090518, end: 20090518
  2. BENADRYL [Concomitant]
  3. PREDNISONE TAB [Concomitant]

REACTIONS (1)
  - URTICARIA [None]
